FAERS Safety Report 20304497 (Version 1)
Quarter: 2022Q1

REPORT INFORMATION
  Report Type: Other
  Country: GB (occurrence: GB)
  Receive Date: 20220106
  Receipt Date: 20220106
  Transmission Date: 20220423
  Serious: Yes (Life-Threatening, Hospitalization, Other)
  Sender: FDA-Public Use
  Company Number: GB-CELLTRION INC.-2021GB018044

PATIENT

DRUGS (8)
  1. RITUXIMAB [Suspect]
     Active Substance: RITUXIMAB
     Indication: High-grade B-cell lymphoma
     Dosage: UNK
     Dates: end: 202112
  2. ONCOVIN [Suspect]
     Active Substance: VINCRISTINE SULFATE
     Indication: High-grade B-cell lymphoma
     Dosage: UNK
     Dates: end: 202112
  3. CYCLOPHOSPHAMIDE [Suspect]
     Active Substance: CYCLOPHOSPHAMIDE
     Indication: High-grade B-cell lymphoma
     Dosage: UNK
     Dates: end: 202112
  4. DOXORUBICIN [Suspect]
     Active Substance: DOXORUBICIN
     Indication: High-grade B-cell lymphoma
     Dosage: UNK
     Dates: end: 202112
  5. PREDNISONE [Suspect]
     Active Substance: PREDNISONE
     Indication: High-grade B-cell lymphoma
     Dosage: UNK
     Dates: end: 202112
  6. CLOZAPINE [Suspect]
     Active Substance: CLOZAPINE
     Indication: Schizophrenia
     Dosage: UNK (DOSE FORM: 245)
     Route: 048
     Dates: start: 20211221
  7. CLOZAPINE [Suspect]
     Active Substance: CLOZAPINE
     Indication: Schizophrenia
     Dosage: UNK (DOSE FORM: 245)
     Route: 048
     Dates: start: 20201013, end: 20210920
  8. CLOZAPINE [Suspect]
     Active Substance: CLOZAPINE
     Dosage: UNK (DOSE FORM: 245)
     Route: 048
     Dates: start: 20210922, end: 202112

REACTIONS (8)
  - Agranulocytosis [Recovered/Resolved]
  - High-grade B-cell lymphoma [Not Recovered/Not Resolved]
  - Neutrophil count increased [Recovered/Resolved]
  - Platelet count increased [Recovered/Resolved]
  - Leukopenia [Recovered/Resolved]
  - Neutropenia [Recovered/Resolved]
  - White blood cell count decreased [Recovered/Resolved]
  - Contraindicated product administered [Not Recovered/Not Resolved]

NARRATIVE: CASE EVENT DATE: 20210809
